FAERS Safety Report 7736805-9 (Version None)
Quarter: 2011Q3

REPORT INFORMATION
  Report Type: 
  Country: None (occurrence: None)
  Receive Date: 20110908
  Receipt Date: 20110908
  Transmission Date: 20111222
  Serious: Yes (Other)
  Sender: FDA-Public Use
  Company Number: None

PATIENT
  Age: 17 Year
  Sex: Female
  Weight: 90.718 kg

DRUGS (3)
  1. COMPLETE MULTI-PURPOSE SOLUTION (OTC) [Suspect]
     Indication: INFECTION PROPHYLAXIS
     Dosage: 8-10 DROPS
     Route: 047
  2. COMPLETE MULTI-PURPOSE SOLUTION (OTC) [Suspect]
     Indication: CONTACT LENS THERAPY
     Dosage: 8-10 DROPS
     Route: 047
  3. COMPLETE MULTIPURPOSE SOLUTION EASY RUB FORMULA [Concomitant]
     Route: 047

REACTIONS (4)
  - PHAGOCYTOSIS [None]
  - CONJUNCTIVITIS [None]
  - ACANTHAMOEBA INFECTION [None]
  - CORNEAL DISORDER [None]
